FAERS Safety Report 8628394 (Version 2)
Quarter: 2012Q4

REPORT INFORMATION
  Report Type: 
  Country: FR (occurrence: FR)
  Receive Date: 20120621
  Receipt Date: 20121219
  Transmission Date: 20130627
  Serious: Yes (Life-Threatening, Hospitalization, Other)
  Sender: FDA-Public Use
  Company Number: PHHO2012FR009215

PATIENT
  Age: 59 Year
  Sex: Male
  Weight: 78 kg

DRUGS (2)
  1. AMN107 [Suspect]
     Indication: CHRONIC MYELOID LEUKAEMIA
     Dosage: 600 mg, BID
     Route: 048
     Dates: start: 20110315, end: 20120610
  2. DEXERYL [Concomitant]
     Indication: PROPHYLAXIS
     Dosage: 1 DF, BID
     Dates: start: 20110315

REACTIONS (1)
  - Coronary artery disease [Recovering/Resolving]
